FAERS Safety Report 16103078 (Version 3)
Quarter: 2019Q3

REPORT INFORMATION
  Report Type: Report from Study
  Country: None (occurrence: CA)
  Receive Date: 20190322
  Receipt Date: 20190925
  Transmission Date: 20191004
  Serious: Yes (Other)
  Sender: FDA-Public Use
  Company Number: CA-ABBVIE-19K-028-2709392-00

PATIENT
  Sex: Male
  Weight: 149.82 kg

DRUGS (1)
  1. HUMIRA [Suspect]
     Active Substance: ADALIMUMAB
     Indication: HIDRADENITIS
     Route: 058
     Dates: start: 20170915

REACTIONS (3)
  - Dry skin [Not Recovered/Not Resolved]
  - Intracranial mass [Unknown]
  - Hidradenitis [Not Recovered/Not Resolved]
